FAERS Safety Report 5463815-7 (Version None)
Quarter: 2007Q3

REPORT INFORMATION
  Report Type: 
  Country: None (occurrence: None)
  Receive Date: 20070919
  Receipt Date: 20070904
  Transmission Date: 20080115
  Serious: Yes (Hospitalization)
  Sender: FDA-Public Use
  Company Number: GXKR2007US07733

PATIENT
  Age: 5 Year
  Sex: Male
  Weight: 17.9 kg

DRUGS (7)
  1. METHYLPREDNISOLONE [Suspect]
     Indication: IMMUNOSUPPRESSION
  2. DACLIZUMAB                         (DACLIZUMAB) [Suspect]
     Indication: IMMUNOSUPPRESSION
  3. MYCOPHENOLATE MOFETIL [Suspect]
     Indication: IMMUNOSUPPRESSION
  4. PREDNISONE [Suspect]
     Indication: IMMUNOSUPPRESSION
  5. TACROLIMUS [Suspect]
     Indication: IMMUNOSUPPRESSION
     Dosage: 25% LESS THAN INITIAL DOSE
  6. CEPHALEXIN [Concomitant]
  7. CIPROFLOXACIN [Concomitant]

REACTIONS (10)
  - ABDOMINAL TENDERNESS [None]
  - ADENOVIRUS INFECTION [None]
  - CYSTITIS HAEMORRHAGIC [None]
  - DIARRHOEA [None]
  - ESCHERICHIA INFECTION [None]
  - PYREXIA [None]
  - TACHYCARDIA [None]
  - TACHYPNOEA [None]
  - TENDERNESS [None]
  - URINARY TRACT INFECTION BACTERIAL [None]
